FAERS Safety Report 10053192 (Version 1)
Quarter: 2014Q2

REPORT INFORMATION
  Report Type: Spontaneous
  Country: US (occurrence: US)
  Receive Date: 20140402
  Receipt Date: 20140402
  Transmission Date: 20141212
  Serious: Yes (Other)
  Sender: FDA-Public Use
  Company Number: US-LUNDBECK-DKLU1098660

PATIENT
  Sex: Female
  Weight: 11 kg

DRUGS (2)
  1. SABRIL (FOR ORAL SOLUTION) [Suspect]
     Indication: INFANTILE SPASMS
     Dates: start: 20130723, end: 20140312
  2. SABRIL (FOR ORAL SOLUTION) [Suspect]
     Dates: start: 20140313

REACTIONS (1)
  - Convulsion [Recovered/Resolved]
